FAERS Safety Report 7224897-5 (Version None)
Quarter: 2011Q1

REPORT INFORMATION
  Report Type: 
  Country: None (occurrence: None)
  Receive Date: 20110113
  Receipt Date: 20110111
  Transmission Date: 20110831
  Serious: Yes (Other)
  Sender: FDA-Public Use
  Company Number: US-ROCHE-752797

PATIENT
  Sex: Female
  Weight: 71.7 kg

DRUGS (19)
  1. PREMPRO [Concomitant]
     Dates: start: 20000101
  2. IMITREX [Concomitant]
     Dosage: DOSING: PRN
     Dates: start: 20020101
  3. ASPIRIN [Concomitant]
     Dosage: DRUG NAME: BABY ASPIRIN.
     Dates: start: 20060516
  4. SULAR [Concomitant]
     Dates: start: 20060610
  5. TRAZODONE [Concomitant]
     Dates: start: 20061009
  6. TOCILIZUMAB [Suspect]
     Indication: RHEUMATOID ARTHRITIS
     Dosage: LAST DOSE ON 01 DECEMBER 2010
     Route: 042
     Dates: start: 20060524
  7. FISH OIL [Concomitant]
     Dates: start: 20030101
  8. MULTI-VITAMIN [Concomitant]
     Dates: start: 20071201
  9. ZYRTEC [Concomitant]
     Dates: start: 20100309
  10. HYDROCHLOROTHIAZIDE [Concomitant]
     Dates: start: 20060610
  11. NEXIUM [Concomitant]
     Dates: start: 20051209
  12. EXCEDRIN (MIGRAINE) [Concomitant]
     Dosage: FREQ: PRN
     Dates: start: 19700101
  13. CELEBREX [Concomitant]
     Dates: start: 20000101
  14. NIFEDIPINE [Concomitant]
     Dates: start: 20091115
  15. METHOTREXATE [Concomitant]
     Dates: start: 20030101
  16. FLONASE [Concomitant]
     Dosage: FORM:SPRAY
     Dates: start: 20080319
  17. CALCIUM [Concomitant]
     Dates: start: 19800101
  18. BONIVA [Concomitant]
     Dates: start: 20061014
  19. FOLIC ACID [Concomitant]
     Dates: start: 20060602

REACTIONS (1)
  - SQUAMOUS CELL CARCINOMA OF SKIN [None]
